FAERS Safety Report 7640218-8 (Version None)
Quarter: 2011Q3

REPORT INFORMATION
  Report Type: 
  Country: None (occurrence: None)
  Receive Date: 20110728
  Receipt Date: 20090429
  Transmission Date: 20111222
  Serious: Yes (Other)
  Sender: FDA-Public Use
  Company Number: US-BAYER-200919748NA

PATIENT
  Age: 65 Year
  Sex: Female
  Weight: 84 kg

DRUGS (14)
  1. FLOMAX [Concomitant]
  2. NIMBEX [Concomitant]
     Dosage: UNK
     Route: 042
     Dates: start: 20050706
  3. PROSTIGMIN BROMIDE [Concomitant]
     Dosage: UNK
     Route: 042
     Dates: start: 20050706
  4. MINITRAN [Concomitant]
  5. TRASYLOL [Suspect]
     Indication: CORONARY ARTERY BYPASS
     Dosage: 200 ML, LOADING DOSE
     Route: 042
     Dates: start: 20050706, end: 20050706
  6. TRASYLOL [Suspect]
     Dosage: 50 ML/HR, INFUSION DOSE
     Route: 042
     Dates: start: 20050706, end: 20050706
  7. NORVASC [Concomitant]
  8. LOTENSIN [Concomitant]
  9. LASIX [Concomitant]
  10. ACETYLSALICYLIC ACID SRT [Concomitant]
  11. RED BLOOD CELLS [Concomitant]
     Dosage: 500 ML, UNK
     Route: 042
     Dates: start: 20050706
  12. ZOCOR [Concomitant]
  13. HEPARIN [Concomitant]
     Dosage: UNK
     Route: 042
     Dates: start: 20050706
  14. METOPROLOL TARTRATE [Concomitant]

REACTIONS (7)
  - RENAL FAILURE [None]
  - INJURY [None]
  - PAIN [None]
  - EMOTIONAL DISTRESS [None]
  - ANXIETY [None]
  - RENAL IMPAIRMENT [None]
  - UNEVALUABLE EVENT [None]
